FAERS Safety Report 7398229-6 (Version None)
Quarter: 2011Q2

REPORT INFORMATION
  Report Type: 
  Country: None (occurrence: None)
  Receive Date: 20110406
  Receipt Date: 20110331
  Transmission Date: 20111010
  Serious: Yes (Life-Threatening, Hospitalization, Other)
  Sender: FDA-Public Use
  Company Number: MX-GILEAD-2011-0037884

PATIENT
  Sex: Female
  Weight: 60 kg

DRUGS (3)
  1. RITONAVIR [Concomitant]
     Indication: HIV INFECTION
  2. ATAZANAVIR [Concomitant]
     Indication: HIV INFECTION
  3. TRUVADA [Suspect]
     Indication: HIV INFECTION
     Dates: end: 20110324

REACTIONS (10)
  - DIARRHOEA [None]
  - BLOOD CREATININE INCREASED [None]
  - PANCREATITIS ACUTE [None]
  - BLOOD UREA INCREASED [None]
  - ASTHENIA [None]
  - ACUTE PRERENAL FAILURE [None]
  - FATIGUE [None]
  - BLOOD BILIRUBIN ABNORMAL [None]
  - THIRST [None]
  - DYSLIPIDAEMIA [None]
